FAERS Safety Report 8068505-2 (Version None)
Quarter: 2012Q1

REPORT INFORMATION
  Report Type: 
  Country: None (occurrence: None)
  Receive Date: 20120124
  Receipt Date: 20111102
  Transmission Date: 20120608
  Serious: No
  Sender: FDA-Public Use
  Company Number: US-AMGEN-USASP2011057406

PATIENT
  Age: 81 Year
  Sex: Female

DRUGS (5)
  1. CALCIUM WITH VITAMIN D [Concomitant]
     Dosage: UNK
  2. MULTI-VITAMIN [Concomitant]
  3. URSODIOL [Concomitant]
     Dosage: UNK
  4. ASPIRIN [Concomitant]
     Dosage: UNK
  5. PROLIA [Suspect]
     Indication: OSTEOPOROSIS
     Dosage: UNK
     Dates: start: 20110822

REACTIONS (3)
  - RED BLOOD CELL SEDIMENTATION RATE INCREASED [None]
  - MYALGIA [None]
  - ARTHRALGIA [None]
